FAERS Safety Report 6363757-9 (Version None)
Quarter: 2009Q3

REPORT INFORMATION
  Report Type: 
  Country: None (occurrence: None)
  Receive Date: 20090919
  Receipt Date: 20090702
  Transmission Date: 20100115
  Serious: No
  Sender: FDA-Public Use
  Company Number: US-ABBOTT-09P-163-0583628-00

PATIENT
  Sex: Male
  Weight: 133.93 kg

DRUGS (5)
  1. HUMIRA [Suspect]
     Indication: PSORIATIC ARTHROPATHY
     Route: 058
     Dates: start: 20090625
  2. GLYBURIDE [Suspect]
     Indication: TYPE 2 DIABETES MELLITUS
     Dates: start: 20090402
  3. METFORMIN HCL [Suspect]
     Indication: TYPE 2 DIABETES MELLITUS
     Route: 048
     Dates: start: 20090402
  4. AZOR [Concomitant]
     Indication: HYPERTENSION
     Dosage: 10/40MG PER TABLET
     Route: 048
     Dates: start: 20090627
  5. IBUPROFEN [Concomitant]
     Indication: PAIN
     Dosage: PRN

REACTIONS (1)
  - BLOOD GLUCOSE DECREASED [None]
